FAERS Safety Report 7692738-8 (Version None)
Quarter: 2011Q3

REPORT INFORMATION
  Report Type: 
  Country: None (occurrence: None)
  Receive Date: 20110819
  Receipt Date: 20110817
  Transmission Date: 20111222
  Serious: No
  Sender: FDA-Public Use
  Company Number: US-PFIZER INC-2011189875

PATIENT
  Sex: Male
  Weight: 118.37 kg

DRUGS (7)
  1. ISOSORBIDE MONONITRATE [Concomitant]
     Dosage: UNK
  2. ALLOPURINOL [Concomitant]
     Indication: CARDIAC DISORDER
     Dosage: UNK
  3. ZETIA [Concomitant]
     Dosage: 10 MG, UNK
  4. LANSOPRAZOLE [Concomitant]
     Dosage: 30 MG, UNK
  5. HYDROCHLOROTHIAZIDE [Concomitant]
     Dosage: 25 MG, UNK
  6. LIPITOR [Suspect]
     Indication: BLOOD CHOLESTEROL INCREASED
     Dosage: 10 MG, 1X/DAY
     Route: 048
  7. FUROSEMIDE [Concomitant]
     Dosage: 40 MG, UNK

REACTIONS (2)
  - ARTHRALGIA [None]
  - ASTHENIA [None]
